FAERS Safety Report 8805239 (Version 2)
Quarter: 2015Q1

REPORT INFORMATION
  Report Type: Report from Study
  Country: US (occurrence: US)
  Receive Date: 20120924
  Receipt Date: 20150331
  Transmission Date: 20150721
  Serious: Yes (Death, Other)
  Sender: FDA-Public Use
  Company Number: US-ROCHE-1126642

PATIENT
  Sex: Female
  Weight: 47 kg

DRUGS (3)
  1. AVASTIN [Suspect]
     Active Substance: BEVACIZUMAB
     Indication: BREAST CANCER FEMALE
     Route: 042
     Dates: start: 20060215
  2. GEMZAR [Concomitant]
     Active Substance: GEMCITABINE HYDROCHLORIDE
     Route: 042
     Dates: start: 200511
  3. TAXOTERE [Concomitant]
     Active Substance: DOCETAXEL
     Route: 042
     Dates: start: 200511

REACTIONS (3)
  - Disease progression [Unknown]
  - Death [Fatal]
  - Off label use [Unknown]
